FAERS Safety Report 24073743 (Version 1)
Quarter: 2024Q3

REPORT INFORMATION
  Report Type: Spontaneous
  Country: US (occurrence: None)
  Receive Date: 20240710
  Receipt Date: 20240710
  Transmission Date: 20241016
  Serious: Yes (Hospitalization)
  Sender: Public
  Company Number: None

PATIENT
  Sex: Female

DRUGS (4)
  1. REPATHA [Suspect]
     Active Substance: EVOLOCUMAB
     Route: 058
     Dates: start: 20180628
  2. MELATONIN [Concomitant]
     Active Substance: MELATONIN
  3. VITAMIN B12 TAB [Concomitant]
  4. VITAMIN D CAP [Concomitant]

REACTIONS (2)
  - Pneumonia [None]
  - Therapy interrupted [None]
